FAERS Safety Report 7053671-8 (Version None)
Quarter: 2010Q4

REPORT INFORMATION
  Report Type: 
  Country: None (occurrence: None)
  Receive Date: 20101020
  Receipt Date: 20101014
  Transmission Date: 20110411
  Serious: Yes (Hospitalization)
  Sender: FDA-Public Use
  Company Number: FR-ELI_LILLY_AND_COMPANY-FR201006000045

PATIENT
  Sex: Female
  Weight: 47 kg

DRUGS (9)
  1. PEMETREXED [Suspect]
     Indication: NON-SMALL CELL LUNG CANCER
     Dosage: 500 MG/M2, DAY 1 EVERY 21 DAYS
     Route: 042
     Dates: start: 20100209, end: 20100504
  2. CISPLATIN [Suspect]
     Indication: NON-SMALL CELL LUNG CANCER
     Dosage: 75 MG/M2, DAY 1 EVERY 21 DAYS
     Route: 042
     Dates: start: 20100209, end: 20100504
  3. FOLIC ACID [Concomitant]
     Indication: PROPHYLAXIS
     Dates: start: 20100204
  4. VITAMIN B-12 [Concomitant]
     Indication: PROPHYLAXIS
     Dates: start: 20100204
  5. DEXAMETHASONE [Concomitant]
     Indication: PROPHYLAXIS
     Dates: start: 20100208
  6. MORPHINE [Concomitant]
     Indication: PAIN
     Dates: start: 20100401
  7. DUPHALAC [Concomitant]
     Dosage: 10 G IN 15 ML, 2 SACHETS MORNING AND MIDDAY
     Dates: start: 20100529
  8. LYRICA [Concomitant]
     Dosage: 75 MG, ONCE IN MORNING AND EVENING
     Dates: start: 20100529
  9. LOVENOX [Concomitant]
     Dates: start: 20100529

REACTIONS (1)
  - BACK PAIN [None]
